FAERS Safety Report 7778738-8 (Version None)
Quarter: 2011Q3

REPORT INFORMATION
  Report Type: 
  Country: None (occurrence: None)
  Receive Date: 20110926
  Receipt Date: 20110921
  Transmission Date: 20111222
  Serious: Yes (Life-Threatening)
  Sender: FDA-Public Use
  Company Number: GB-BAYER-2011-046598

PATIENT
  Age: 70 Year
  Sex: Male

DRUGS (15)
  1. CITALOPRAM [Concomitant]
     Dosage: QD20 MG, QD
  2. OMEPRAZOLE [Concomitant]
     Dosage: 20 MG, BID
  3. TOLTERODINE TARTRATE [Concomitant]
     Dosage: 1 MG, BID
  4. GLIMEPIRIDE [Concomitant]
     Indication: HYPERGLYCAEMIA
     Dosage: 2 MG, UNK
     Dates: start: 20110817, end: 20110907
  5. DOXAZOSIN MESYLATE [Concomitant]
     Indication: HYPERTENSION
     Dosage: 2 MG, QD
     Dates: start: 20110817
  6. CLOPIDOGREL [Concomitant]
     Indication: THROMBOSIS PROPHYLAXIS
     Dosage: 75 MG, QD
     Dates: start: 20110817
  7. SORAFENIB (RAF KINASE INHIBITOR) [Suspect]
     Indication: RENAL CELL CARCINOMA
     Dosage: 400 MG, BID
     Dates: start: 20110224, end: 20110506
  8. ASPIRIN [Concomitant]
     Indication: THROMBOSIS PROPHYLAXIS
     Dosage: 75 MG, UNK
     Dates: start: 20110817
  9. ORAL ANTIDIABETICS [Concomitant]
     Indication: DIABETES MELLITUS
  10. METFORMIN HCL [Concomitant]
     Dosage: 850 MG, TDS
  11. TAMSULOSIN HCL [Concomitant]
     Dosage: 400 ?G, QD
  12. DUTASTERIDE [Concomitant]
     Dosage: 500 MG, QD
  13. LOSARTAN POTASSIUM [Concomitant]
     Indication: HYPERTENSION
     Dosage: 100 MG, QD
     Dates: start: 20080327
  14. LANSOPRAZOLE [Concomitant]
     Dosage: 30 MG, QD
  15. ATORVASTATIN [Concomitant]
     Indication: BLOOD CHOLESTEROL INCREASED
     Dosage: 80 MG, NOCTE
     Dates: start: 20050909

REACTIONS (5)
  - DYSPHAGIA [None]
  - DIARRHOEA [None]
  - CEREBROVASCULAR ACCIDENT [None]
  - SPEECH DISORDER [None]
  - HEMIPARESIS [None]
